FAERS Safety Report 6745747-7 (Version None)
Quarter: 2010Q2

REPORT INFORMATION
  Report Type: 
  Country: None (occurrence: None)
  Receive Date: 20100528
  Receipt Date: 20100517
  Transmission Date: 20101027
  Serious: Yes (Other)
  Sender: FDA-Public Use
  Company Number: PHBS2006KR14287

PATIENT
  Age: 27 Year
  Sex: Male

DRUGS (12)
  1. CLOZAPINE [Suspect]
     Dosage: 250 MG/DAY
     Dates: start: 19970901
  2. CLOZAPINE [Suspect]
     Dosage: 450 MG/DAY
  3. CLOZAPINE [Suspect]
     Dosage: 425 MG, QD
     Dates: start: 19990801
  4. CLOZAPINE [Suspect]
     Dosage: 400 MG, QD
     Dates: start: 20000801
  5. CLOZAPINE [Suspect]
     Dosage: 300 MG, QD
     Dates: start: 20050401
  6. CLOZAPINE [Suspect]
     Dosage: 350 MG, QD
     Dates: start: 20050501
  7. BENZATROPINE [Suspect]
     Indication: ENURESIS
     Dosage: 3 MG PER DAY
     Dates: start: 20000801, end: 20021101
  8. BENZATROPINE [Suspect]
     Dosage: 2 MG PER DAY
     Dates: start: 20050401
  9. BENZATROPINE [Suspect]
     Dosage: 2 MG PER DAY
     Dates: start: 20050501
  10. FLUVOXAMINE MALEATE [Suspect]
     Dosage: 100 MG/DAY
     Dates: start: 20020801
  11. FLUVOXAMINE MALEATE [Suspect]
     Dosage: 100 MG PER DAY
     Dates: start: 20030801
  12. FLUVOXAMINE MALEATE [Suspect]
     Dosage: 50 MG PER DAY
     Dates: start: 20050401

REACTIONS (7)
  - CONVULSION [None]
  - DROOLING [None]
  - ENURESIS [None]
  - MALAISE [None]
  - NERVOUSNESS [None]
  - OBSESSIVE-COMPULSIVE DISORDER [None]
  - PERSECUTORY DELUSION [None]
